FAERS Safety Report 14588030 (Version 1)
Quarter: 2018Q1

REPORT INFORMATION
  Report Type: Spontaneous
  Country: CA (occurrence: CA)
  Receive Date: 20180301
  Receipt Date: 20180301
  Transmission Date: 20180509
  Serious: Yes (Death, Other)
  Sender: FDA-Public Use
  Company Number: CA-PFIZER INC-2018066776

PATIENT
  Age: 66 Year
  Sex: Male

DRUGS (13)
  1. REVATIO [Suspect]
     Active Substance: SILDENAFIL CITRATE
     Indication: PULMONARY ARTERIAL HYPERTENSION
     Dosage: 20 MG, UNK
     Route: 048
  2. WARFARIN [Concomitant]
     Active Substance: WARFARIN
  3. MIDAMOR [Concomitant]
     Active Substance: AMILORIDE HYDROCHLORIDE
  4. PERCOCET /00446701/ [Concomitant]
     Active Substance: ACETAMINOPHEN\OXYCODONE HYDROCHLORIDE\OXYCODONE TEREPHTHALATE
  5. LANTUS [Concomitant]
     Active Substance: INSULIN GLARGINE
  6. VITAMIN B12 [Concomitant]
     Active Substance: CYANOCOBALAMIN
  7. ULORIC [Concomitant]
     Active Substance: FEBUXOSTAT
  8. BACLOFEN. [Concomitant]
     Active Substance: BACLOFEN
  9. POTASSIUM [Concomitant]
     Active Substance: POTASSIUM
  10. LAXATIVE [Concomitant]
     Active Substance: UNSPECIFIED INGREDIENT
  11. UPTRAVI [Concomitant]
     Active Substance: SELEXIPAG
  12. ZAROXOLYN [Concomitant]
     Active Substance: METOLAZONE
  13. MACITENTAN [Concomitant]
     Active Substance: MACITENTAN

REACTIONS (1)
  - Death [Fatal]

NARRATIVE: CASE EVENT DATE: 20180218
